FAERS Safety Report 6725119-1 (Version None)
Quarter: 2010Q2

REPORT INFORMATION
  Report Type: 
  Country: None (occurrence: None)
  Receive Date: 20100514
  Receipt Date: 20100416
  Transmission Date: 20101027
  Serious: Yes (Death, Hospitalization)
  Sender: FDA-Public Use
  Company Number: US-RANBAXY-2010US-33472

PATIENT

DRUGS (47)
  1. GANCICLOVIR [Suspect]
     Indication: ANTIVIRAL PROPHYLAXIS
     Dosage: 1000MG, 3 IN 1D
     Route: 048
     Dates: start: 20080902, end: 20080920
  2. MARIBAVIR (PLACEBO) [Suspect]
     Indication: ANTIVIRAL PROPHYLAXIS
     Dosage: 100 MG, BID
     Route: 048
     Dates: start: 20080902, end: 20080920
  3. ACYCLOVIR SODIUM [Suspect]
     Indication: ANTIVIRAL PROPHYLAXIS
     Dosage: 400 MG, BID
     Route: 048
     Dates: start: 20080902, end: 20080920
  4. PROGRAF [Suspect]
     Indication: PROPHYLAXIS AGAINST TRANSPLANT REJECTION
     Dosage: 0-6MG, 2IN 1D
     Route: 048
     Dates: start: 20080823
  5. PREDNISOLONE [Suspect]
     Indication: PROPHYLAXIS AGAINST TRANSPLANT REJECTION
     Dosage: 10 MG, BID
     Route: 048
     Dates: start: 20080829, end: 20080908
  6. PREDNISOLONE [Suspect]
     Dosage: 10 MG IN AM, 5 MG IN PM
     Route: 048
     Dates: start: 20080909, end: 20080914
  7. PREDNISOLONE [Suspect]
     Dosage: 15 MG QD
     Route: 048
     Dates: start: 20080915, end: 20080925
  8. PREDNISOLONE [Suspect]
     Dosage: 10 MG 2 IN 1 D
     Route: 048
     Dates: start: 20080925, end: 20081009
  9. ADALAT [Concomitant]
     Indication: HYPERTENSION
     Dosage: UNK UNK,
     Route: 048
  10. ALVEDON [Concomitant]
     Indication: PROCEDURAL PAIN
     Route: 048
  11. BACTRIM [Concomitant]
     Indication: ANTIFUNGAL PROPHYLAXIS
     Route: 048
     Dates: start: 20080902, end: 20080920
  12. CELLCEPT [Concomitant]
     Indication: PROPHYLAXIS AGAINST TRANSPLANT REJECTION
     Dosage: 500 MG, BID
     Route: 048
     Dates: start: 20080824, end: 20080920
  13. DIFLUCAN [Concomitant]
     Indication: WOUND INFECTION
     Dosage: UNK
     Route: 048
     Dates: start: 20080902, end: 20080920
  14. LAXOBERAL [Concomitant]
     Indication: CONSTIPATION PROPHYLAXIS
     Dosage: UNK
     Route: 048
     Dates: start: 20080826, end: 20080916
  15. LAXOBERAL [Concomitant]
     Dosage: UNK
     Dates: start: 20080928
  16. MYCOSTATIN [Concomitant]
     Indication: ANTIFUNGAL PROPHYLAXIS
     Dosage: UNK
     Route: 048
     Dates: start: 20080825, end: 20080915
  17. OMEPRAZOLE [Concomitant]
     Indication: PROPHYLAXIS AGAINST GASTROINTESTINAL ULCER
     Dosage: UNK
     Route: 048
     Dates: start: 20080823, end: 20080923
  18. OXYCONTIN [Concomitant]
     Indication: PROCEDURAL PAIN
     Dosage: UNK
     Route: 048
     Dates: start: 20080825, end: 20080923
  19. TROMBYL [Concomitant]
     Indication: THROMBOSIS PROPHYLAXIS
     Dosage: UNK
     Route: 048
     Dates: start: 20080902, end: 20080920
  20. FUROSEMID [Concomitant]
     Indication: RENAL FAILURE
     Dosage: UNK
     Route: 042
     Dates: start: 20080922
  21. MERONEM [Concomitant]
     Indication: WOUND INFECTION
     Dosage: UNK
     Route: 042
     Dates: start: 20080828, end: 20080902
  22. MERONEM [Concomitant]
     Indication: GASTROINTESTINAL HAEMORRHAGE
     Dosage: UNK
     Route: 042
     Dates: start: 20080917, end: 20080922
  23. MERONEM [Concomitant]
     Indication: ENTEROCOCCAL INFECTION
     Dosage: UNK
     Route: 042
     Dates: start: 20081001, end: 20081020
  24. PANTOPRAZOLE [Concomitant]
     Indication: GASTROINTESTINAL HAEMORRHAGE
     Dosage: UNK
     Route: 042
     Dates: start: 20080920
  25. TAZOCIN [Concomitant]
     Indication: GASTROINTESTINAL HAEMORRHAGE
     Dosage: UNK
     Route: 042
     Dates: start: 20080922
  26. URSO FALK [Concomitant]
     Indication: DRUG USE FOR UNKNOWN INDICATION
     Dosage: UNK
     Route: 048
     Dates: start: 20080927
  27. VANCOMYCIN [Concomitant]
     Indication: WOUND INFECTION
     Dosage: UNK
     Route: 042
     Dates: start: 20080924, end: 20080930
  28. NORADRENALIN [Concomitant]
     Indication: DRUG USE FOR UNKNOWN INDICATION
     Dosage: UNK
     Route: 042
     Dates: start: 20081012, end: 20081117
  29. AMBISOME [Concomitant]
     Indication: GASTROINTESTINAL HAEMORRHAGE
     Dosage: UNK
     Route: 042
     Dates: start: 20080920
  30. CALCIUM CHLORIDE [Concomitant]
     Indication: ELECTROLYTE SUBSTITUTION THERAPY
     Dosage: UNK
     Route: 042
     Dates: start: 20081018
  31. CIPROXIN [Concomitant]
     Indication: PNEUMONIA
     Dosage: UNK
     Route: 042
     Dates: start: 20081028
  32. FLAGYL [Concomitant]
     Indication: PROPHYLAXIS
     Dosage: UNK
     Route: 048
     Dates: start: 20081028
  33. GAMMAGARD [Concomitant]
     Indication: GRAFT VERSUS HOST DISEASE
     Dosage: UNK
     Route: 042
     Dates: start: 20081021
  34. HUMULIN R [Concomitant]
     Indication: HYPERGLYCAEMIA
     Dosage: UNK
     Route: 042
     Dates: start: 20081012
  35. KETOGAN [Concomitant]
     Indication: PROCEDURAL PAIN
     Dosage: UNK
     Route: 042
     Dates: start: 20081013
  36. MABTHERA [Concomitant]
     Indication: EPSTEIN-BARR VIRUS ASSOCIATED LYMPHOPROLIFERATIVE DISORDER
     Dosage: UNK
     Route: 042
     Dates: start: 20081017
  37. MIDAZOLAME [Concomitant]
     Indication: SEDATION
     Dosage: UNK
     Route: 042
     Dates: start: 20081025
  38. ORTHOCLONE OKT3 [Concomitant]
     Indication: GRAFT VERSUS HOST DISEASE
     Dosage: UNK
     Dates: start: 20081029
  39. PERFALGAN [Concomitant]
     Indication: PYREXIA
     Dosage: UNK
     Route: 042
     Dates: start: 20081012, end: 20081028
  40. PERFALGAN [Concomitant]
     Indication: PAIN
  41. PRECORTALONE [Concomitant]
     Indication: PROPHYLAXIS AGAINST TRANSPLANT REJECTION
     Dosage: 20-50 MG (1-2 TIMES/DAY)
     Route: 042
     Dates: start: 20081013
  42. SANDOSTATIN [Concomitant]
     Indication: PROPHYLAXIS
     Dosage: UNK
     Route: 058
     Dates: start: 20081013, end: 20081015
  43. TAVEGYL [Concomitant]
     Indication: PREMEDICATION
     Dosage: UNK
     Route: 042
     Dates: start: 20081017
  44. TYGACIL [Concomitant]
     Indication: ABDOMINAL INFECTION
     Dosage: UNK
     Route: 042
     Dates: start: 20081030
  45. VENTOLIN [Concomitant]
     Indication: RESPIRATORY FAILURE
     Dosage: UNK
     Route: 045
     Dates: start: 20081012, end: 20081020
  46. VENTOLIN [Concomitant]
     Dosage: UNK
     Dates: start: 20081028
  47. ZYVOXID [Concomitant]
     Indication: ENTEROCOCCAL INFECTION
     Dosage: UNK
     Route: 042
     Dates: start: 20081004, end: 20081028

REACTIONS (8)
  - ACUTE GRAFT VERSUS HOST DISEASE [None]
  - BILE DUCT NECROSIS [None]
  - CIRCULATORY COLLAPSE [None]
  - EPSTEIN-BARR VIRUS INFECTION [None]
  - HEPATIC ARTERY ANEURYSM [None]
  - INTESTINAL ISCHAEMIA [None]
  - POSTOPERATIVE WOUND INFECTION [None]
  - SEPSIS [None]
